FAERS Safety Report 8137909-1 (Version None)
Quarter: 2012Q1

REPORT INFORMATION
  Report Type: 
  Country: None (occurrence: None)
  Receive Date: 20120213
  Receipt Date: 20120201
  Transmission Date: 20120608
  Serious: Yes (Hospitalization, Other)
  Sender: FDA-Public Use
  Company Number: AUR-APL-2012-00866

PATIENT
  Age: 54 Year
  Sex: Female

DRUGS (4)
  1. CARDIZEM [Suspect]
     Indication: HYPERTENSION
     Dosage: UNKNOWN
  2. LISINOPRIL [Suspect]
     Indication: HYPERTENSION
     Dosage: UNKNOWN
  3. SYNTHROID [Concomitant]
  4. REBIF [Suspect]
     Indication: MULTIPLE SCLEROSIS
     Dosage: 18.8571 MCG (44 MCG, 3 IN 1 WK), SUBCUTANEOUS
     Route: 058
     Dates: start: 20020717

REACTIONS (5)
  - HYPERTENSION [None]
  - LOSS OF CONSCIOUSNESS [None]
  - INJECTION SITE CELLULITIS [None]
  - VOMITING [None]
  - BLOOD PRESSURE DECREASED [None]
